FAERS Safety Report 17884371 (Version 3)
Quarter: 2021Q1

REPORT INFORMATION
  Report Type: Spontaneous
  Country: US (occurrence: US)
  Receive Date: 20200611
  Receipt Date: 20210111
  Transmission Date: 20210419
  Serious: Yes (Other)
  Sender: FDA-Public Use
  Company Number: US-PFIZER INC-2020143892

PATIENT
  Age: 71 Year
  Sex: Female

DRUGS (3)
  1. LYRICA [Suspect]
     Active Substance: PREGABALIN
     Indication: NEUROPATHY PERIPHERAL
     Dosage: 150 MG, 2X/DAY (TAKE 1 CAPSULE BY MOUTH 2 (TWO) TIMES A DAY)
     Route: 048
  2. LYRICA [Suspect]
     Active Substance: PREGABALIN
     Indication: PAIN IN EXTREMITY
  3. LYRICA [Suspect]
     Active Substance: PREGABALIN
     Indication: GOUT

REACTIONS (6)
  - Daydreaming [Unknown]
  - Erythema [Recovered/Resolved]
  - Arthralgia [Recovering/Resolving]
  - Postoperative wound infection [Recovered/Resolved]
  - Swelling [Recovered/Resolved]
  - Mass [Not Recovered/Not Resolved]
